FAERS Safety Report 15469922 (Version 2)
Quarter: 2018Q4

REPORT INFORMATION
  Report Type: Report from Study
  Country: CO (occurrence: CO)
  Receive Date: 20181005
  Receipt Date: 20181009
  Transmission Date: 20190205
  Serious: Yes (Death)
  Sender: FDA-Public Use
  Company Number: PHHY2018CO117510

PATIENT
  Sex: Female

DRUGS (1)
  1. AFINITOR [Suspect]
     Active Substance: EVEROLIMUS
     Indication: BREAST CANCER
     Dosage: 10 MG, QD
     Route: 048

REACTIONS (4)
  - Metastases to kidney [Fatal]
  - Metastases to bone [Fatal]
  - Breast cancer [Fatal]
  - Malignant neoplasm progression [Fatal]
